FAERS Safety Report 17771727 (Version 3)
Quarter: 2021Q2

REPORT INFORMATION
  Report Type: Report from Study
  Country: JP (occurrence: JP)
  Receive Date: 20200512
  Receipt Date: 20210408
  Transmission Date: 20210716
  Serious: Yes (Other)
  Sender: FDA-Public Use
  Company Number: JP-OTSUKA-2015_012346

PATIENT
  Age: 44 Year
  Sex: Male
  Weight: 72 kg

DRUGS (8)
  1. FEBURIC [Concomitant]
     Active Substance: FEBUXOSTAT
     Indication: PRODUCT USED FOR UNKNOWN INDICATION
     Dosage: 10 MG, QD
     Route: 048
     Dates: start: 20170420, end: 20170928
  2. TOLVAPTAN [Suspect]
     Active Substance: TOLVAPTAN
     Indication: CONGENITAL CYSTIC KIDNEY DISEASE
     Dosage: 45 MG, QD(IN THE MORNING)
     Route: 048
     Dates: start: 20150225, end: 20150916
  3. TOLVAPTAN [Suspect]
     Active Substance: TOLVAPTAN
     Dosage: 45MG, DIVIDED 2 DOSES (EACH DOSE UNKNOWN)
     Route: 048
     Dates: start: 20170622
  4. TOLVAPTAN [Suspect]
     Active Substance: TOLVAPTAN
     Dosage: 90MG, DAILY DOSE (DIVIDED 2 DOSES)
     Route: 048
     Dates: start: 20150917, end: 20150930
  5. TOLVAPTAN [Suspect]
     Active Substance: TOLVAPTAN
     Dosage: 60MG, DAILY DOSE (DIVIDED 2 DOSES)
     Route: 048
     Dates: start: 20151001, end: 20160217
  6. ALFACALCIDOL [Concomitant]
     Active Substance: ALFACALCIDOL
     Indication: PRODUCT USED FOR UNKNOWN INDICATION
     Dosage: 0.25 ?G, QD
     Route: 048
     Dates: start: 20180614, end: 20190812
  7. TOLVAPTAN [Suspect]
     Active Substance: TOLVAPTAN
     Dosage: 75MG, DIVIDED 2 DOSES (EACH DOSE UNKNOWN)
     Route: 048
     Dates: start: 20160218, end: 20170621
  8. TOLVAPTAN [Suspect]
     Active Substance: TOLVAPTAN
     Dosage: 15 MG, QD (IN THE EVENING)
     Route: 048
     Dates: start: 20150225, end: 20150916

REACTIONS (6)
  - Asthenopia [Recovering/Resolving]
  - Diastolic hypertension [Unknown]
  - Thirst [Recovering/Resolving]
  - Musculoskeletal stiffness [Recovering/Resolving]
  - Disturbance in attention [Recovering/Resolving]
  - Pollakiuria [Recovering/Resolving]

NARRATIVE: CASE EVENT DATE: 20150225
